FAERS Safety Report 11832536 (Version 3)
Quarter: 2016Q4

REPORT INFORMATION
  Report Type: Report from Study
  Country: TN (occurrence: TN)
  Receive Date: 20151214
  Receipt Date: 20161122
  Transmission Date: 20170206
  Serious: Yes (Hospitalization, Other)
  Sender: FDA-Public Use
  Company Number: PHHY2015TN158165

PATIENT
  Age: 58 Year
  Sex: Male

DRUGS (10)
  1. CORVASAL [Suspect]
     Active Substance: LINSIDOMINE
     Indication: CARDIOVASCULAR DISORDER
     Dosage: THREE TIMES A DAY
     Route: 065
  2. LANTUS [Concomitant]
     Active Substance: INSULIN GLARGINE
     Indication: DIABETES MELLITUS
     Dosage: UNK UNK, ONCE DAILY
     Route: 065
     Dates: start: 201502
  3. TORVA//ATORVASTATIN CALCIUM [Concomitant]
     Indication: CARDIOVASCULAR DISORDER
     Dosage: 40 MG, ONCE DAILY
     Route: 065
  4. CARDENSIEL [Suspect]
     Active Substance: BISOPROLOL FUMARATE
     Indication: CARDIOVASCULAR DISORDER
     Dosage: 2.5 MG, UNK
     Route: 065
  5. NOVORAPID [Concomitant]
     Active Substance: INSULIN ASPART
     Indication: DIABETES MELLITUS
     Dosage: UNK UNK, ONCE DAILY
     Route: 065
     Dates: start: 201502
  6. TRIATEC [Suspect]
     Active Substance: RAMIPRIL
     Indication: CARDIOVASCULAR DISORDER
     Dosage: 2.5 MG, ONCE DAILY
     Route: 065
  7. TASIGNA [Suspect]
     Active Substance: NILOTINIB
     Indication: CHRONIC MYELOID LEUKAEMIA
     Dosage: 200 MG, TWICE A DAY
     Route: 048
     Dates: start: 2012, end: 201508
  8. KARDEGIC [Suspect]
     Active Substance: ASPIRIN LYSINE
     Indication: CARDIOVASCULAR DISORDER
     Dosage: 160 MG, ONCE DAILY
     Route: 065
  9. VESSEL DUE [Concomitant]
     Indication: CARDIOVASCULAR DISORDER
     Dosage: TWICE A DAY
     Route: 065
  10. ESORAL [Suspect]
     Active Substance: ESOMEPRAZOLE MAGNESIUM
     Indication: CARDIOVASCULAR DISORDER
     Dosage: 20 MG, UNK
     Route: 065

REACTIONS (3)
  - Cerebrovascular accident [Recovered/Resolved with Sequelae]
  - Myocardial infarction [Recovered/Resolved]
  - Peripheral arterial occlusive disease [Recovered/Resolved]

NARRATIVE: CASE EVENT DATE: 2012
